FAERS Safety Report 6085283-7 (Version None)
Quarter: 2009Q1

REPORT INFORMATION
  Report Type: 
  Country: None (occurrence: None)
  Receive Date: 20090218
  Receipt Date: 20090202
  Transmission Date: 20090719
  Serious: Yes (Other)
  Sender: FDA-Public Use
  Company Number: 2009S1001967

PATIENT
  Sex: Female

DRUGS (2)
  1. ISOTRETINOIN [Suspect]
     Dosage: 30 MG; DAILY; ORAL, 30 MG; AS NEEDED, ORAL
     Route: 048
     Dates: end: 20081101
  2. ISOTRETINOIN [Suspect]
     Dosage: 30 MG; DAILY; ORAL, 30 MG; AS NEEDED, ORAL
     Route: 048
     Dates: start: 20081201, end: 20081201

REACTIONS (1)
  - DRUG EXPOSURE BEFORE PREGNANCY [None]
